FAERS Safety Report 26059786 (Version 1)
Quarter: 2025Q4

REPORT INFORMATION
  Report Type: Spontaneous
  Country: JP (occurrence: JP)
  Receive Date: 20251118
  Receipt Date: 20251118
  Transmission Date: 20260118
  Serious: Yes (Hospitalization)
  Sender: SHIONOGI
  Company Number: JP-shionogi-202500012230

PATIENT
  Age: 69 Year
  Sex: Female

DRUGS (1)
  1. CEFIDEROCOL [Suspect]
     Active Substance: CEFIDEROCOL
     Indication: Febrile neutropenia
     Route: 065

REACTIONS (1)
  - Bacteraemia [Not Recovered/Not Resolved]
